FAERS Safety Report 24053832 (Version 1)
Quarter: 2024Q3

REPORT INFORMATION
  Report Type: Spontaneous
  Country: AE (occurrence: AE)
  Receive Date: 20240705
  Receipt Date: 20240705
  Transmission Date: 20241016
  Serious: Yes (Other)
  Sender: REGENERON
  Company Number: AE-BAYER-2024A090493

PATIENT
  Age: 63 Year
  Sex: Female

DRUGS (1)
  1. EYLEA HD [Suspect]
     Active Substance: AFLIBERCEPT
     Indication: Product used for unknown indication
     Dosage: UNK, SOLUTION FOR INJECTION, 114.3 MG/ML
     Dates: start: 20240612

REACTIONS (5)
  - Ocular hypertension [Recovered/Resolved]
  - Uveitis [Unknown]
  - Intraocular pressure increased [Unknown]
  - Iridocyclitis [Recovered/Resolved]
  - Corneal oedema [Recovered/Resolved]

NARRATIVE: CASE EVENT DATE: 20240616
